FAERS Safety Report 22604865 (Version 1)
Quarter: 2023Q2

REPORT INFORMATION
  Report Type: Spontaneous
  Country: PT (occurrence: PT)
  Receive Date: 20230615
  Receipt Date: 20230615
  Transmission Date: 20230722
  Serious: Yes (Other)
  Sender: FDA-Public Use
  Company Number: None

PATIENT
  Age: 38 Year
  Sex: Male

DRUGS (1)
  1. CIMZIA [Suspect]
     Active Substance: CERTOLIZUMAB PEGOL
     Indication: Ankylosing spondylitis
     Dosage: 1 DOSAGE FORM (200 MG/ 1ML), EV 15 DAYS
     Dates: start: 202105

REACTIONS (6)
  - Spontaneous penile erection [Recovered/Resolved]
  - Swelling face [Not Recovered/Not Resolved]
  - Penis disorder [Not Recovered/Not Resolved]
  - Hot flush [Recovered/Resolved]
  - Pigmentation disorder [Not Recovered/Not Resolved]
  - Intentional product misuse [Unknown]

NARRATIVE: CASE EVENT DATE: 20210101
